FAERS Safety Report 5863442-3 (Version None)
Quarter: 2008Q3

REPORT INFORMATION
  Report Type: 
  Country: None (occurrence: None)
  Receive Date: 20080828
  Receipt Date: 20080819
  Transmission Date: 20090109
  Serious: Yes (Other)
  Sender: FDA-Public Use
  Company Number: US-PFIZER INC-2008069772

PATIENT
  Age: 38 Year
  Sex: Female
  Weight: 95.3 kg

DRUGS (2)
  1. DOSTINEX [Suspect]
     Indication: HYPERPROLACTINAEMIA
     Route: 048
  2. DOSTINEX [Suspect]
     Indication: PITUITARY TUMOUR BENIGN

REACTIONS (2)
  - BLOOD PROLACTIN INCREASED [None]
  - PULMONARY HYPERTENSION [None]
